FAERS Safety Report 22397356 (Version 1)
Quarter: 2023Q2

REPORT INFORMATION
  Report Type: Spontaneous
  Country: US (occurrence: None)
  Receive Date: 20230602
  Receipt Date: 20230602
  Transmission Date: 20230721
  Serious: Yes (Other)
  Sender: FDA-Public Use
  Company Number: US-ROCHE-3318814

PATIENT
  Age: 33 Year
  Sex: Female
  Weight: 75.818 kg

DRUGS (2)
  1. OCREVUS [Suspect]
     Active Substance: OCRELIZUMAB
     Indication: Relapsing-remitting multiple sclerosis
     Route: 042
     Dates: start: 20190225, end: 20230316
  2. TYSABRI [Concomitant]
     Active Substance: NATALIZUMAB
     Dates: start: 2018, end: 2019

REACTIONS (2)
  - Vaginal infection [Unknown]
  - Vaginal infection [Recovered/Resolved]
